FAERS Safety Report 9040511 (Version 1)
Quarter: 2013Q1

REPORT INFORMATION
  Report Type: Report from Study
  Country: US (occurrence: US)
  Receive Date: 20130129
  Receipt Date: 20130129
  Transmission Date: 20140127
  Serious: No
  Sender: FDA-Public Use
  Company Number: US-ABBOTT-12P-163-0889389-00

PATIENT
  Sex: Female
  Weight: 90.8 kg

DRUGS (9)
  1. HUMIRA 40 MG/ 0.8 ML PRE-FILLED SYRINGE [Suspect]
     Indication: PSORIASIS
  2. UNNAMED MEDICATION [Concomitant]
     Indication: HYPERTENSION
  3. SYMBICORT [Concomitant]
     Indication: ASTHMA
  4. SYMBICORT [Concomitant]
     Indication: HYPERSENSITIVITY
  5. FLONASE [Concomitant]
     Indication: ASTHMA
  6. FLONASE [Concomitant]
     Indication: HYPERSENSITIVITY
  7. XYZAL [Concomitant]
     Indication: ASTHMA
  8. XYZAL [Concomitant]
     Indication: HYPERSENSITIVITY
  9. ALLERGY INJECTIONS [Concomitant]
     Indication: HYPERSENSITIVITY
     Dates: start: 2007

REACTIONS (1)
  - Drug ineffective [Not Recovered/Not Resolved]
